FAERS Safety Report 15205404 (Version 1)
Quarter: 2018Q3

REPORT INFORMATION
  Report Type: Spontaneous
  Country: US (occurrence: US)
  Receive Date: 20180628
  Receipt Date: 20180628
  Transmission Date: 20181010
  Serious: Yes (Death)
  Sender: FDA-Public Use
  Company Number: None

PATIENT
  Age: 76 Year
  Sex: Female
  Weight: 53 kg

DRUGS (1)
  1. WARFARIN [Suspect]
     Active Substance: WARFARIN

REACTIONS (8)
  - Hemiparesis [None]
  - Mydriasis [None]
  - Cerebral haemorrhage [None]
  - Fall [None]
  - Dysarthria [None]
  - Brain herniation [None]
  - Dyspnoea [None]
  - Brain oedema [None]

NARRATIVE: CASE EVENT DATE: 20180320
